FAERS Safety Report 8764875 (Version 1)
Quarter: 2012Q4

REPORT INFORMATION
  Report Type: 
  Country: US (occurrence: US)
  Receive Date: 20120901
  Receipt Date: 20120901
  Transmission Date: 20130627
  Serious: No
  Sender: FDA-Public Use
  Company Number: US-009507513-1208USA007333

PATIENT

DRUGS (3)
  1. PEGINTRON [Suspect]
     Indication: HEPATITIS C
     Dosage: 120 mcg per 0.5 ml, qw
     Route: 058
  2. FLONASE [Concomitant]
     Dosage: UNK, prn
  3. ALPRAZOLAM [Concomitant]
     Dosage: UNK, prn

REACTIONS (4)
  - Back pain [Unknown]
  - Musculoskeletal pain [Unknown]
  - Dizziness [Unknown]
  - Injection site reaction [Unknown]
